FAERS Safety Report 9364547 (Version 1)
Quarter: 2013Q2

REPORT INFORMATION
  Report Type: Spontaneous
  Country: FR (occurrence: None)
  Receive Date: 20130619
  Receipt Date: 20130619
  Transmission Date: 20140414
  Serious: Yes (Hospitalization)
  Sender: FDA-Public Use
  Company Number: 1749725

PATIENT
  Age: 67 Year
  Sex: Male

DRUGS (11)
  1. ATRACURIUM BESILATE [Suspect]
     Indication: ANAESTHESIA
     Dosage: INTRAVENOUS (NOT OTHERWISE SPECIFIED
     Route: 042
     Dates: start: 20130311, end: 20130311
  2. CEFUROXIME [Suspect]
     Indication: ANTIBIOTIC PROPHYLAXIS
     Dosage: INTRAVENOUS (NOT OTHERWISE SPECIFIED)
     Route: 042
     Dates: start: 20130311, end: 20130311
  3. EPHEDRINE [Suspect]
     Indication: ANAESTHESIA
     Dosage: INTRAVENOUS (NOT OTHERWISE SPECIFIED)?
     Route: 042
     Dates: start: 20130311, end: 20130311
  4. EPHEDRINE [Suspect]
     Indication: HYPOTENSION
     Dosage: INTRAVENOUS (NOT OTHERWISE SPECIFIED)?
     Route: 042
     Dates: start: 20130311, end: 20130311
  5. EPHEDRINE [Suspect]
     Indication: BLOOD PRESSURE
     Dosage: INTRAVENOUS (NOT OTHERWISE SPECIFIED)?
     Route: 042
     Dates: start: 20130311, end: 20130311
  6. NIMBEX [Suspect]
     Indication: ANAESTHESIA
     Dosage: INTRAVENOUS (NOT OTHERWISE SPECIFIED)
     Route: 042
     Dates: start: 20130311, end: 20130311
  7. SUFENTANIL [Suspect]
     Indication: ANAESTHESIA
     Dosage: 20 GAMMA INTRAVENOUS (NOT OTHERWISE SPECIFIED)
     Route: 042
     Dates: start: 20130311, end: 20130311
  8. SUPRANE [Suspect]
     Indication: ANAESTHESIA
     Dosage: INTRAVENOUS (NOT OTHERWISE SPECIFIED)?
     Route: 042
     Dates: start: 20130311, end: 20130311
  9. RAPIFEN [Suspect]
     Indication: ANAESTHESIA
     Dosage: INTRAVENOUS (NOT OTHERWISE SPECIFIED)
     Route: 042
     Dates: start: 20130311, end: 20130311
  10. DIPRIVAN [Suspect]
     Indication: ANAESTHESIA
     Dosage: INTRAVENOUS (NOT OTHERWISE SPECIFIED)
     Route: 042
     Dates: start: 20130311, end: 20130311
  11. KETAMINE [Suspect]
     Indication: ANAESTHESIA
     Dosage: INTRAVENOUS (NOT OTHERWISE SPECIFIED)
     Route: 042
     Dates: start: 20130311, end: 20130311

REACTIONS (2)
  - Shock [None]
  - Haemodynamic instability [None]
